FAERS Safety Report 25343511 (Version 1)
Quarter: 2025Q2

REPORT INFORMATION
  Report Type: Spontaneous
  Country: US (occurrence: US)
  Receive Date: 20250521
  Receipt Date: 20250521
  Transmission Date: 20250717
  Serious: Yes (Other)
  Sender: EISAI
  Company Number: US-Eisai-EC-2025-189281

PATIENT
  Age: 81 Year
  Sex: Female

DRUGS (1)
  1. LEQEMBI [Suspect]
     Active Substance: LECANEMAB-IRMB
     Indication: Product used for unknown indication
     Dates: start: 20250313, end: 2025

REACTIONS (1)
  - Neoplasm malignant [Unknown]

NARRATIVE: CASE EVENT DATE: 20250101
